FAERS Safety Report 15654249 (Version 2)
Quarter: 2018Q4

REPORT INFORMATION
  Report Type: Spontaneous
  Country: US (occurrence: US)
  Receive Date: 20181125
  Receipt Date: 20181213
  Transmission Date: 20190205
  Serious: No
  Sender: FDA-Public Use
  Company Number: US-AMGEN INC.-USASP2018163158

PATIENT
  Age: 40 Year
  Sex: Female
  Weight: 70.75 kg

DRUGS (4)
  1. CITRACAL [Concomitant]
     Active Substance: CALCIUM CITRATE
     Route: 065
  2. ZYRTEC [Concomitant]
     Active Substance: CETIRIZINE HYDROCHLORIDE
     Dosage: 10 MG, UNK
     Route: 065
  3. METFORMIN [Concomitant]
     Active Substance: METFORMIN HYDROCHLORIDE
     Indication: POLYCYSTIC OVARIES
     Dosage: 500 MG, BID
     Route: 065
  4. AIMOVIG [Suspect]
     Active Substance: ERENUMAB-AOOE
     Indication: MIGRAINE
     Dosage: 70 MG, QMO
     Route: 065
     Dates: start: 20180726

REACTIONS (4)
  - Weight increased [Unknown]
  - Scratch [Recovering/Resolving]
  - Impaired healing [Recovering/Resolving]
  - Skin laceration [Unknown]

NARRATIVE: CASE EVENT DATE: 2018
